FAERS Safety Report 5861536-X (Version None)
Quarter: 2008Q3

REPORT INFORMATION
  Report Type: 
  Country: None (occurrence: None)
  Receive Date: 20080827
  Receipt Date: 20080506
  Transmission Date: 20090109
  Serious: No
  Sender: FDA-Public Use
  Company Number: US-ABBOTT-08P-163-0450617-00

PATIENT
  Sex: Male
  Weight: 77.634 kg

DRUGS (14)
  1. COATED PDS [Suspect]
     Indication: HIGH DENSITY LIPOPROTEIN DECREASED
     Dosage: COATED
     Route: 048
     Dates: start: 20070101
  2. COATED PDS [Suspect]
     Route: 048
     Dates: end: 20070101
  3. ACETYLSALICYLIC ACID SRT [Concomitant]
     Indication: ANTICOAGULANT THERAPY
     Route: 048
  4. INEGY [Concomitant]
     Indication: BLOOD CHOLESTEROL INCREASED
     Dosage: 10/80
     Route: 048
  5. RAMIPRIL [Concomitant]
     Indication: CARDIOVASCULAR DISORDER
     Route: 048
  6. LEVOTHYROXINE SODIUM [Concomitant]
     Indication: HYPOTHYROIDISM
     Route: 048
  7. CALCIUM [Concomitant]
     Indication: OSTEOPENIA
     Route: 048
  8. ALENDRONATE SODIUM [Concomitant]
     Indication: OSTEOPENIA
     Route: 048
  9. ANDROGEAL 1% [Concomitant]
     Indication: BLOOD TESTOSTERONE DECREASED
     Dosage: GEL
     Route: 061
  10. THEOPHYLLINE [Concomitant]
     Indication: ASTHMA
     Route: 048
  11. SALBUTAMOL [Concomitant]
     Indication: ASTHMA
  12. HYDROXIZINE [Concomitant]
     Indication: HYPERSENSITIVITY
     Route: 048
  13. GLUCOSAMINE CHONDROITIN [Concomitant]
     Indication: DRUG USE FOR UNKNOWN INDICATION
     Route: 048
  14. CITRACEL [Concomitant]
     Indication: DRUG USE FOR UNKNOWN INDICATION
     Route: 048

REACTIONS (2)
  - PRURITUS [None]
  - RASH [None]
